FAERS Safety Report 22798060 (Version 6)
Quarter: 2023Q4

REPORT INFORMATION
  Report Type: Spontaneous
  Country: CN (occurrence: CN)
  Receive Date: 20230808
  Receipt Date: 20231206
  Transmission Date: 20240109
  Serious: Yes (Life-Threatening, Hospitalization, Other)
  Sender: FDA-Public Use
  Company Number: CN-ROCHE-3397554

PATIENT
  Sex: Male
  Weight: 70.199 kg

DRUGS (7)
  1. CAPECITABINE [Suspect]
     Active Substance: CAPECITABINE
     Indication: Rectal cancer
     Dosage: 5 TIMES IN 1 WEEK,
     Route: 048
     Dates: start: 20230314
  2. CAPECITABINE [Suspect]
     Active Substance: CAPECITABINE
     Indication: Rectal cancer
     Dosage: DATE OF MOST RECENT DOSE OF CAPECITABINE PRIOR TO SAE WAS 20/APR/2023
     Dates: start: 20230420
  3. ATEZOLIZUMAB [Suspect]
     Active Substance: ATEZOLIZUMAB
     Indication: Rectal cancer
     Route: 042
     Dates: start: 20230512
  4. ATEZOLIZUMAB [Suspect]
     Active Substance: ATEZOLIZUMAB
     Indication: Rectal cancer
     Dosage: DATE OF MOST RECENT DOSE OF ATEZOLIZUMAB PRIOR TO SAE WAS 21/JUN/2023
     Dates: start: 20230621
  5. SODIUM POLYSTYRENE SULFONATE [Concomitant]
     Active Substance: SODIUM POLYSTYRENE SULFONATE
     Dates: start: 20230730, end: 20230730
  6. FUROSEMIDE [Concomitant]
     Active Substance: FUROSEMIDE
  7. GLUTATHIONE [Concomitant]
     Active Substance: GLUTATHIONE

REACTIONS (7)
  - Delirium [Recovered/Resolved]
  - Gastrointestinal haemorrhage [Unknown]
  - Renal failure [Not Recovered/Not Resolved]
  - Hyperkalaemia [Recovered/Resolved]
  - Myocardial necrosis marker increased [Not Recovered/Not Resolved]
  - Metabolic acidosis [Unknown]
  - End stage renal disease [Unknown]

NARRATIVE: CASE EVENT DATE: 20230720
